FAERS Safety Report 25667985 (Version 1)
Quarter: 2025Q3

REPORT INFORMATION
  Report Type: Report from Study
  Country: US (occurrence: US)
  Receive Date: 20250812
  Receipt Date: 20250812
  Transmission Date: 20251021
  Serious: Yes (Death, Other)
  Sender: DIFGEN PHARMACEUTICALS LLC
  Company Number: US-Difgen-012109

PATIENT
  Age: 12 Month
  Sex: Male

DRUGS (1)
  1. NICOTINE [Suspect]
     Active Substance: NICOTINE
     Indication: Product used for unknown indication
     Route: 065

REACTIONS (3)
  - Cardiac arrest [Fatal]
  - Unresponsive to stimuli [Fatal]
  - Accidental exposure to product by child [Fatal]
